FAERS Safety Report 8829977 (Version 1)
Quarter: 2012Q4

REPORT INFORMATION
  Report Type: 
  Country: CA (occurrence: CA)
  Receive Date: 20121008
  Receipt Date: 20121008
  Transmission Date: 20130627
  Serious: Yes (Other)
  Sender: FDA-Public Use
  Company Number: PHHY2012CA088306

PATIENT
  Age: 77 None
  Sex: Female

DRUGS (5)
  1. ACLASTA [Suspect]
     Indication: OSTEOPOROSIS
     Dosage: 5 mg, UNK
     Route: 042
     Dates: start: 20101111
  2. ACLASTA [Suspect]
     Dosage: 5 mg, UNK
     Route: 042
     Dates: start: 20111028
  3. ACLASTA [Suspect]
     Dosage: 5 mg, UNK
     Route: 042
     Dates: start: 20121003
  4. COVERSYL [Concomitant]
     Dosage: 4 mg, QD
  5. TENORMIN [Concomitant]
     Dosage: 25 mg, daily

REACTIONS (8)
  - Fall [Unknown]
  - Hypertension [Unknown]
  - Gait disturbance [Unknown]
  - Groin pain [Unknown]
  - Pain [Unknown]
  - Arthralgia [Unknown]
  - Pain in extremity [Unknown]
  - Nasopharyngitis [Unknown]
